FAERS Safety Report 5313468-3 (Version None)
Quarter: 2007Q1

REPORT INFORMATION
  Report Type: 
  Country: None (occurrence: None)
  Receive Date: 20070130
  Receipt Date: 20060808
  Transmission Date: 20070707
  Serious: Yes (Other)
  Sender: FDA-Public Use
  Company Number: 145868USA

PATIENT
  Age: 27 Year
  Sex: Female

DRUGS (4)
  1. COPAXONE [Suspect]
     Indication: MULTIPLE SCLEROSIS
     Dosage: (20 MG), SUBCUTANEOUS
     Route: 058
     Dates: start: 19990701, end: 20060516
  2. MULTI-VITAMINS [Concomitant]
  3. PARACETAMOL [Concomitant]
  4. SUMATRIPTAN SUCCINATE [Concomitant]

REACTIONS (1)
  - ANAPHYLACTIC REACTION [None]
